FAERS Safety Report 16680267 (Version 2)
Quarter: 2020Q1

REPORT INFORMATION
  Report Type: Spontaneous
  Country: US (occurrence: US)
  Receive Date: 20190807
  Receipt Date: 20200317
  Transmission Date: 20200409
  Serious: No
  Sender: FDA-Public Use
  Company Number: US-GILEAD-2019-0421539

PATIENT
  Sex: Male

DRUGS (1)
  1. COMPLERA [Suspect]
     Active Substance: EMTRICITABINE\RILPIVIRINE HYDROCHLORIDE\TENOFOVIR DISOPROXIL FUMARATE
     Indication: PRODUCT USED FOR UNKNOWN INDICATION
     Dosage: UNK
     Route: 065
     Dates: start: 2009, end: 201907

REACTIONS (5)
  - Electrocardiogram QT prolonged [Recovered/Resolved]
  - Arrhythmia [Unknown]
  - Dizziness [Recovered/Resolved]
  - Mental disorder [Unknown]
  - Nausea [Unknown]
